FAERS Safety Report 8952280 (Version 1)
Quarter: 2012Q4

REPORT INFORMATION
  Report Type: 
  Country: US (occurrence: US)
  Receive Date: 20121205
  Receipt Date: 20121205
  Transmission Date: 20130627
  Serious: Yes (Hospitalization)
  Sender: FDA-Public Use
  Company Number: US-GE HEALTHCARE MEDICAL DIAGNOSTICS-OMPQ-PR-1211S-1263

PATIENT
  Age: 55 Year
  Sex: Male
  Weight: 83.08 kg

DRUGS (19)
  1. OMNIPAQUE [Suspect]
     Indication: MALIGNANT MELANOMA
     Route: 042
     Dates: start: 20121009, end: 20121009
  2. OMNIPAQUE [Suspect]
     Indication: DIAGNOSTIC PROCEDURE
  3. PACLITAXEL [Suspect]
     Indication: MALIGNANT MELANOMA
     Route: 065
  4. AXITINIB [Suspect]
     Indication: MALIGNANT MELANOMA
     Route: 065
  5. CARBOPLATIN [Suspect]
     Indication: MALIGNANT MELANOMA
     Route: 065
  6. VITAMIN C [Concomitant]
  7. ACETYLSALICYLIC ACID [Concomitant]
  8. COENZYME 010 [Concomitant]
  9. PROPECIA [Concomitant]
  10. PREVACID [Concomitant]
  11. FOLIC ACID [Concomitant]
  12. BENICAR [Concomitant]
  13. OMEGA-3 TRLGLYCERIDES [Concomitant]
  14. SODIUM FLUORIDE [Concomitant]
  15. VIAGRA [Concomitant]
  16. METOPROLOL [Concomitant]
  17. IRON [Concomitant]
  18. SYNTHROID [Concomitant]
  19. ZOFRAN [Concomitant]

REACTIONS (1)
  - Blood creatinine increased [Unknown]
